FAERS Safety Report 5846901-9 (Version None)
Quarter: 2008Q3

REPORT INFORMATION
  Report Type: 
  Country: None (occurrence: None)
  Receive Date: 20080815
  Receipt Date: 20080806
  Transmission Date: 20090109
  Serious: Yes (Other)
  Sender: FDA-Public Use
  Company Number: US-ROCHE-549219

PATIENT
  Sex: Female

DRUGS (3)
  1. ACCUTANE [Suspect]
     Indication: ACNE
     Route: 065
     Dates: start: 19901128, end: 19901217
  2. ACCUTANE [Suspect]
     Route: 065
     Dates: start: 19901218, end: 19910217
  3. ACCUTANE [Suspect]
     Route: 065
     Dates: start: 19910218, end: 19910218

REACTIONS (14)
  - ANAEMIA [None]
  - COLECTOMY [None]
  - COLITIS ULCERATIVE [None]
  - COLONIC STENOSIS [None]
  - CROHN'S DISEASE [None]
  - DIVERTICULUM [None]
  - HAEMORRHOIDS [None]
  - HEADACHE [None]
  - INFLAMMATORY BOWEL DISEASE [None]
  - KLEBSIELLA INFECTION [None]
  - OBESITY [None]
  - PEPTIC ULCER [None]
  - PROCTITIS ULCERATIVE [None]
  - STRESS [None]
